FAERS Safety Report 6542524-7 (Version None)
Quarter: 2010Q1

REPORT INFORMATION
  Report Type: 
  Country: None (occurrence: None)
  Receive Date: 20100119
  Receipt Date: 20100104
  Transmission Date: 20100710
  Serious: Yes (Death)
  Sender: FDA-Public Use
  Company Number: US-PFIZER INC-2010000984

PATIENT
  Age: 41 Year
  Sex: Male

DRUGS (4)
  1. ALPRAZOLAM [Suspect]
     Route: 048
  2. DULOXETINE [Suspect]
     Route: 048
  3. OLANZAPINE [Suspect]
     Route: 048
  4. ACETAMINOPHEN AND HYDROCODONE BITARTRATE [Suspect]
     Route: 048

REACTIONS (3)
  - CARDIAC ARREST [None]
  - COMPLETED SUICIDE [None]
  - RESPIRATORY ARREST [None]
